FAERS Safety Report 25682340 (Version 1)
Quarter: 2025Q3

REPORT INFORMATION
  Report Type: Spontaneous
  Country: US (occurrence: US)
  Receive Date: 20250814
  Receipt Date: 20250814
  Transmission Date: 20251021
  Serious: No
  Sender: BIOMARIN
  Company Number: US-BIOMARINAP-US-2025-167967

PATIENT
  Age: 25 Year
  Sex: Female
  Weight: 109.1 kg

DRUGS (5)
  1. PALYNZIQ [Suspect]
     Active Substance: PEGVALIASE-PQPZ
     Indication: Product used for unknown indication
  2. PALYNZIQ [Suspect]
     Active Substance: PEGVALIASE-PQPZ
  3. VITAMINS [Concomitant]
     Active Substance: VITAMINS
     Indication: Routine health maintenance
  4. BUPROPION [Concomitant]
     Active Substance: BUPROPION
     Indication: Depression
  5. SERTRALINE [Concomitant]
     Active Substance: SERTRALINE HYDROCHLORIDE
     Indication: Depression

REACTIONS (1)
  - Injection site scar [Recovering/Resolving]

NARRATIVE: CASE EVENT DATE: 20250723
